FAERS Safety Report 6437483-1 (Version None)
Quarter: 2009Q4

REPORT INFORMATION
  Report Type: 
  Country: None (occurrence: None)
  Receive Date: 20091112
  Receipt Date: 20091109
  Transmission Date: 20100525
  Serious: Yes (Death)
  Sender: FDA-Public Use
  Company Number: PHEH2009US07611

PATIENT
  Sex: Female

DRUGS (4)
  1. ZOMETA [Suspect]
     Indication: METASTASES TO BONE
     Dosage: EVERY 4 TO 6 WEEKS
     Route: 042
  2. DURAGESIC-100 [Concomitant]
     Indication: PAIN
     Dosage: UNK
     Route: 062
     Dates: start: 20090421, end: 20090501
  3. ROXANOL [Concomitant]
     Dosage: 20 MG/ML
     Route: 060
     Dates: start: 20090421, end: 20090501
  4. LORAZEPAM [Concomitant]
     Dosage: UNK
     Route: 060
     Dates: start: 20090421, end: 20090501

REACTIONS (1)
  - BREAST CANCER METASTATIC [None]
